FAERS Safety Report 10575628 (Version 1)
Quarter: 2014Q4

REPORT INFORMATION
  Report Type: Spontaneous
  Country: US (occurrence: None)
  Receive Date: 20141110
  Receipt Date: 20141110
  Transmission Date: 20150529
  Serious: Yes (Other)
  Sender: FDA-Public Use
  Company Number: None

PATIENT
  Age: 67 Year
  Sex: Female
  Weight: 65.4 kg

DRUGS (2)
  1. RADIATION [Suspect]
     Active Substance: RADIATION THERAPY
     Dosage: 6000 CGY
     Dates: start: 20140512, end: 20140620
  2. N-ACETYLCYSTEINE [Suspect]
     Active Substance: ACETYLCYSTEINE
     Dates: start: 20140514, end: 20140609

REACTIONS (1)
  - Oral pain [None]

NARRATIVE: CASE EVENT DATE: 20140530
